FAERS Safety Report 17034695 (Version 1)
Quarter: 2019Q4

REPORT INFORMATION
  Report Type: Spontaneous
  Country: FR (occurrence: FR)
  Receive Date: 20191115
  Receipt Date: 20191115
  Transmission Date: 20200122
  Serious: Yes (Other)
  Sender: FDA-Public Use
  Company Number: FR-SA-2019SA317073

PATIENT
  Sex: Female

DRUGS (2)
  1. KEVZARA [Suspect]
     Active Substance: SARILUMAB
  2. FORSTEO [Concomitant]
     Active Substance: TERIPARATIDE
     Dosage: UNK
     Dates: start: 2004

REACTIONS (1)
  - Cardiac tamponade [Unknown]

NARRATIVE: CASE EVENT DATE: 2019
